FAERS Safety Report 23208524 (Version 3)
Quarter: 2024Q1

REPORT INFORMATION
  Report Type: Other
  Country: DE (occurrence: None)
  Receive Date: 20231121
  Receipt Date: 20240305
  Transmission Date: 20240409
  Serious: Yes (Other)
  Sender: FDA-Public Use
  Company Number: DE-ROCHE-3294273

PATIENT
  Age: 40 Year
  Sex: Male

DRUGS (4)
  1. OCREVUS [Suspect]
     Active Substance: OCRELIZUMAB
     Indication: Relapsing-remitting multiple sclerosis
     Route: 042
     Dates: start: 20210401
  2. NABIXIMOLS [Concomitant]
     Active Substance: NABIXIMOLS
     Dosage: 12 PUFFS DAILY AS NEEDED
  3. METAMIZOLE [Concomitant]
     Active Substance: METAMIZOLE
  4. BACLOFEN [Concomitant]
     Active Substance: BACLOFEN
     Dosage: 2-0-2

REACTIONS (5)
  - Spinal pain [Not Recovered/Not Resolved]
  - Pain in extremity [Not Recovered/Not Resolved]
  - Abscess limb [Not Recovered/Not Resolved]
  - Groin abscess [Not Recovered/Not Resolved]
  - Scrotal abscess [Not Recovered/Not Resolved]

NARRATIVE: CASE EVENT DATE: 20220101
